FAERS Safety Report 24026768 (Version 1)
Quarter: 2024Q2

REPORT INFORMATION
  Report Type: Spontaneous
  Country: AT (occurrence: AT)
  Receive Date: 20240628
  Receipt Date: 20240628
  Transmission Date: 20240715
  Serious: No
  Sender: FDA-Public Use
  Company Number: AT-ROCHE-3541655

PATIENT
  Age: 53 Year
  Sex: Female

DRUGS (5)
  1. ALECTINIB [Suspect]
     Active Substance: ALECTINIB
     Indication: Lung adenocarcinoma
     Route: 065
  2. LORLATINIB [Concomitant]
     Active Substance: LORLATINIB
     Dates: start: 202010
  3. LORLATINIB [Concomitant]
     Active Substance: LORLATINIB
     Route: 065
  4. PRAVASTATIN [Concomitant]
     Active Substance: PRAVASTATIN
  5. ROSUVASTATIN [Concomitant]
     Active Substance: ROSUVASTATIN

REACTIONS (2)
  - Drug resistance [Unknown]
  - Anaplastic lymphoma kinase gene mutation [Unknown]
